FAERS Safety Report 17123157 (Version 2)
Quarter: 2019Q4

REPORT INFORMATION
  Report Type: Spontaneous
  Country: IT (occurrence: IT)
  Receive Date: 20191206
  Receipt Date: 20191226
  Transmission Date: 20200122
  Serious: Yes (Hospitalization, Other)
  Sender: FDA-Public Use
  Company Number: IT-PFIZER INC-2019525674

PATIENT
  Age: 53 Year
  Sex: Female

DRUGS (6)
  1. ESIDREX [Suspect]
     Active Substance: HYDROCHLOROTHIAZIDE
     Dosage: 1500 MG, SINGLE
     Route: 048
     Dates: start: 20191112, end: 20191112
  2. XANAX [Suspect]
     Active Substance: ALPRAZOLAM
     Dosage: UNK
  3. DEPAKIN CHRONO [VALPROATE SODIUM] [Concomitant]
     Active Substance: VALPROATE SODIUM
     Dosage: UNK
     Dates: start: 20171107, end: 20191112
  4. ENTUMIN [Concomitant]
     Active Substance: CLOTHIAPINE
     Dosage: UNK
     Dates: start: 20190709, end: 20191112
  5. CLOPIXOL [ZUCLOPENTHIXOL HYDROCHLORIDE] [Suspect]
     Active Substance: ZUCLOPENTHIXOL HYDROCHLORIDE
     Dosage: UNK
  6. EUTIROX [Concomitant]
     Active Substance: LEVOTHYROXINE SODIUM
     Dosage: UNK
     Dates: start: 20120811, end: 20191112

REACTIONS (2)
  - Suicidal ideation [Recovered/Resolved]
  - Drug abuse [Recovered/Resolved]

NARRATIVE: CASE EVENT DATE: 20191112
